FAERS Safety Report 12928780 (Version 1)
Quarter: 2016Q4

REPORT INFORMATION
  Report Type: Spontaneous
  Country: US (occurrence: US)
  Receive Date: 20161110
  Receipt Date: 20161110
  Transmission Date: 20170207
  Serious: No
  Sender: FDA-Public Use
  Company Number: US-JNJFOC-20161024802

PATIENT
  Age: 68 Year
  Sex: Female
  Weight: 54.43 kg

DRUGS (18)
  1. PROBIOTICS NOS [Concomitant]
     Active Substance: PROBIOTICS NOS
     Indication: DYSPEPSIA
     Route: 065
  2. HERBAL NOS [Concomitant]
     Active Substance: HERBALS
     Indication: ARTHRALGIA
     Route: 065
  3. VITAMINS WITH MINERALS [Concomitant]
     Active Substance: MINERALS\VITAMINS
     Indication: MYALGIA
     Route: 065
  4. CALCIUM LACTATE [Concomitant]
     Active Substance: CALCIUM LACTATE
     Indication: BONE DISORDER
     Route: 065
  5. ZYRTEC [Suspect]
     Active Substance: CETIRIZINE HYDROCHLORIDE
     Indication: CHRONIC OBSTRUCTIVE PULMONARY DISEASE
     Route: 048
  6. ZYRTEC [Suspect]
     Active Substance: CETIRIZINE HYDROCHLORIDE
     Indication: CHRONIC OBSTRUCTIVE PULMONARY DISEASE
     Dosage: 1/2 TABLET
     Route: 048
  7. DIETARY SUPPLEMENT [Concomitant]
     Active Substance: DIETARY SUPPLEMENT
     Indication: LUNG DISORDER
     Route: 065
  8. VITAMINS WITH MINERALS [Concomitant]
     Active Substance: MINERALS\VITAMINS
     Indication: LUNG DISORDER
     Route: 065
  9. VITAMINS WITH MINERALS [Concomitant]
     Active Substance: MINERALS\VITAMINS
     Indication: ARTHRALGIA
     Route: 065
  10. ZYRTEC [Suspect]
     Active Substance: CETIRIZINE HYDROCHLORIDE
     Indication: URTICARIA
     Route: 048
  11. DIETARY SUPPLEMENT [Concomitant]
     Active Substance: DIETARY SUPPLEMENT
     Indication: DYSPEPSIA
     Route: 065
  12. DIETARY SUPPLEMENT [Concomitant]
     Active Substance: DIETARY SUPPLEMENT
     Indication: DYSPEPSIA
     Route: 065
  13. DRAMAMINE [Concomitant]
     Active Substance: DIMENHYDRINATE
     Indication: ADRENAL DISORDER
     Route: 065
  14. COD-LIVER OIL [Concomitant]
     Active Substance: FISH OIL
     Indication: DRY EYE
     Route: 065
  15. ZYRTEC [Suspect]
     Active Substance: CETIRIZINE HYDROCHLORIDE
     Indication: URTICARIA
     Dosage: 1/2 TABLET
     Route: 048
  16. HERBAL NOS [Concomitant]
     Active Substance: HERBALS
     Indication: MYALGIA
     Route: 065
  17. MICROGENICS DIGESTIVE ENZYME FORMULA [Concomitant]
     Indication: DYSPEPSIA
     Route: 065
  18. ANTRONEX [Concomitant]
     Indication: ANTIALLERGIC THERAPY
     Route: 065

REACTIONS (5)
  - Product use issue [Recovered/Resolved]
  - Off label use [Recovered/Resolved]
  - Product quality issue [Unknown]
  - Abdominal discomfort [Recovered/Resolved]
  - Abdominal pain [Recovered/Resolved]
